FAERS Safety Report 13185735 (Version 1)
Quarter: 2017Q1

REPORT INFORMATION
  Report Type: Spontaneous
  Country: BR (occurrence: BR)
  Receive Date: 20170203
  Receipt Date: 20170203
  Transmission Date: 20170428
  Serious: Yes (Hospitalization, Other)
  Sender: FDA-Public Use
  Company Number: BR-BAYER-2017-016495

PATIENT
  Age: 40 Year
  Sex: Female

DRUGS (2)
  1. ACETYLSALICYLIC ACID({=100 MG) [Suspect]
     Active Substance: ASPIRIN
     Dosage: 100 MG, QD, STARTED AT 31 GESTATIONAL WEEK
  2. ENOXAPARIN [Concomitant]
     Active Substance: ENOXAPARIN
     Dosage: 40 MG, QD, STARTED AT 31 GESTATIONAL WEEK AND STOPPED AT 33 WEEKS

REACTIONS (3)
  - Maternal exposure during pregnancy [None]
  - Foetal death [None]
  - Contraindicated product administered [None]
